FAERS Safety Report 6156336-X (Version None)
Quarter: 2009Q2

REPORT INFORMATION
  Report Type: 
  Country: None (occurrence: None)
  Receive Date: 20090415
  Receipt Date: 20090409
  Transmission Date: 20091009
  Serious: Yes (Other)
  Sender: FDA-Public Use
  Company Number: US-JNJCH-2009010109

PATIENT
  Age: 2 Year
  Sex: Male
  Weight: 15.9 kg

DRUGS (1)
  1. BENADRYL [Suspect]
     Indication: RHINORRHOEA
     Dosage: TEXT:1/4 TEASPOONFUL ONCE
     Route: 048
     Dates: start: 20090115, end: 20090115

REACTIONS (3)
  - DYSPNOEA [None]
  - HYPERSENSITIVITY [None]
  - WRONG DRUG ADMINISTERED [None]
